FAERS Safety Report 9662277 (Version 1)
Quarter: 2013Q4

REPORT INFORMATION
  Report Type: Spontaneous
  Country: US (occurrence: US)
  Receive Date: 20131031
  Receipt Date: 20131031
  Transmission Date: 20140711
  Serious: No
  Sender: FDA-Public Use
  Company Number: US-PURDUE-USA-2011-0071273

PATIENT
  Age: 70 Year
  Sex: Female

DRUGS (4)
  1. OXYCONTIN (NDA 22-272) [Suspect]
     Indication: NEURALGIA
     Dosage: 40 MG, BID
  2. NEURONTIN [Suspect]
     Dosage: 300 MG, Q6H
  3. ELAVIL-PLUS [Suspect]
     Dosage: 25 MG, BID
  4. OXCARBAZEPINE [Suspect]
     Dosage: 150 MG, BID

REACTIONS (1)
  - Dyskinesia [Unknown]
